FAERS Safety Report 10513115 (Version 4)
Quarter: 2023Q2

REPORT INFORMATION
  Report Type: Spontaneous
  Country: GB (occurrence: GB)
  Receive Date: 20141013
  Receipt Date: 20230427
  Transmission Date: 20230721
  Serious: Yes (Hospitalization)
  Sender: FDA-Public Use
  Company Number: GB-AUROBINDO-AUR-APL-2014-10564

PATIENT
  Age: 70 Year
  Sex: Male
  Weight: 93 kg

DRUGS (7)
  1. CLOPIDOGREL BISULFATE [Suspect]
     Active Substance: CLOPIDOGREL BISULFATE
     Indication: Peripheral arterial occlusive disease
     Dosage: 75 MILLIGRAM, ONCE A DAY
     Route: 048
     Dates: start: 20130716, end: 20140617
  2. DOXAZOSIN [Suspect]
     Active Substance: DOXAZOSIN MESYLATE
     Indication: Hypertension
     Dosage: UNK
     Route: 048
     Dates: start: 20031222, end: 20140621
  3. LISINOPRIL [Suspect]
     Active Substance: LISINOPRIL
     Indication: Hypertension
     Dosage: UNK
     Route: 048
     Dates: start: 20031222, end: 20140621
  4. BENDROFLUMETHIAZIDE [Suspect]
     Active Substance: BENDROFLUMETHIAZIDE
     Indication: Diuretic therapy
     Dosage: UNK
     Route: 048
     Dates: start: 20101110, end: 20140621
  5. FELODIPINE [Suspect]
     Active Substance: FELODIPINE
     Indication: Hypertension
     Dosage: UNK
     Route: 048
     Dates: start: 20031222, end: 20140621
  6. TICAGRELOR [Concomitant]
     Active Substance: TICAGRELOR
     Indication: Arterial disorder
     Dosage: UNK
     Route: 048
     Dates: start: 20130716, end: 20140617
  7. SIMVASTATIN [Concomitant]
     Active Substance: SIMVASTATIN
     Indication: Hypercholesterolaemia
     Dosage: UNK
     Route: 048
     Dates: start: 20070420, end: 20140621

REACTIONS (5)
  - Renal tubular necrosis [Recovered/Resolved]
  - Dysuria [Unknown]
  - Hypophagia [Unknown]
  - Abdominal pain [Unknown]
  - Malaise [Unknown]

NARRATIVE: CASE EVENT DATE: 20140617
